FAERS Safety Report 5867888-9 (Version None)
Quarter: 2008Q3

REPORT INFORMATION
  Report Type: 
  Country: None (occurrence: None)
  Receive Date: 20080902
  Receipt Date: 20080707
  Transmission Date: 20090109
  Serious: No
  Sender: FDA-Public Use
  Company Number: US-ABBOTT-08P-163-0461390-00

PATIENT
  Sex: Female
  Weight: 81.72 kg

DRUGS (3)
  1. DEPAKOTE ER [Suspect]
     Indication: BIPOLAR DISORDER
     Dosage: AT BEDTIME
     Route: 048
     Dates: start: 20000101
  2. LAMOTRIGINE [Suspect]
     Indication: BIPOLAR DISORDER
     Dosage: DAILY
     Route: 048
     Dates: start: 20080301, end: 20080501
  3. LAMOTRIGINE [Suspect]
     Dosage: DAILY
     Route: 048
     Dates: start: 20080501, end: 20080601

REACTIONS (1)
  - RASH [None]
